FAERS Safety Report 6238049-9 (Version None)
Quarter: 2009Q2

REPORT INFORMATION
  Report Type: 
  Country: None (occurrence: None)
  Receive Date: 20090622
  Receipt Date: 20090616
  Transmission Date: 20091009
  Serious: Yes (Hospitalization, Other)
  Sender: FDA-Public Use
  Company Number: IT-BRISTOL-MYERS SQUIBB COMPANY-14644595

PATIENT
  Age: 78 Year
  Sex: Female

DRUGS (3)
  1. TRAZODONE HCL [Suspect]
     Dosage: RECEIVED UPTO 600 MG/DAY
  2. DIAZEPAM [Suspect]
     Dosage: RECEIVED UPTO 20 MG/DAY
  3. VENLAFAXINE HCL [Suspect]
     Dosage: RECEIVED UPTO 300 MG/DAY

REACTIONS (2)
  - DRUG ABUSE [None]
  - MARCHIAFAVA-BIGNAMI DISEASE [None]
